FAERS Safety Report 4616358-4 (Version None)
Quarter: 2005Q1

REPORT INFORMATION
  Report Type: 
  Country: None (occurrence: None)
  Receive Date: 20050321
  Receipt Date: 20050317
  Transmission Date: 20050727
  Serious: Yes (Hospitalization)
  Sender: FDA-Public Use
  Company Number: 212032

PATIENT
  Age: 40 Year
  Sex: Male
  Weight: 105 kg

DRUGS (6)
  1. RAPTIVA [Suspect]
     Indication: PSORIASIS
     Dosage: SEE IMAGE
     Route: 058
     Dates: start: 20050107, end: 20050107
  2. RAPTIVA [Suspect]
     Indication: PSORIASIS
     Dosage: SEE IMAGE
     Route: 058
     Dates: start: 20050114, end: 20050114
  3. GENGRAF [Concomitant]
  4. DOVONEX CREAM (CALCIPOTRIENE) [Concomitant]
  5. DIPROLENE CREAM (BETAMETHASONE DIPROPIONATE) [Concomitant]
  6. TRIAMCINOLONE ACETONIDE CREAM (TRIAMCINOLONE ACETONIDE) [Concomitant]

REACTIONS (3)
  - APPENDICITIS [None]
  - CONDITION AGGRAVATED [None]
  - PSORIASIS [None]
